FAERS Safety Report 9409214 (Version 3)
Quarter: 2013Q3

REPORT INFORMATION
  Report Type: Spontaneous
  Country: DE (occurrence: None)
  Receive Date: 20130430
  Receipt Date: 20130703
  Transmission Date: 20140515
  Serious: Yes (Hospitalization)
  Sender: FDA-Public Use
  Company Number: 2013035703

PATIENT
  Age: 39 Year
  Sex: Male

DRUGS (1)
  1. PRIVIGEN [Suspect]
     Indication: CHRONIC INFLAMMATORY DEMYELINATING POLYRADICULONEUROPATHY
     Dosage: 180 G, 30 RESP. 40G DAILY
     Route: 042
     Dates: start: 20130315, end: 20130319

REACTIONS (3)
  - Haemolytic anaemia [None]
  - Chromaturia [None]
  - Jaundice [None]
